FAERS Safety Report 7304418-9 (Version None)
Quarter: 2011Q1

REPORT INFORMATION
  Report Type: 
  Country: None (occurrence: None)
  Receive Date: 20110221
  Receipt Date: 20110210
  Transmission Date: 20110831
  Serious: Yes (Hospitalization)
  Sender: FDA-Public Use
  Company Number: US-ASTRAZENECA-2011SE08335

PATIENT
  Age: 78 Year
  Sex: Female

DRUGS (1)
  1. SYMBICORT [Suspect]
     Dosage: 160 / 4.5 MCG 2 PUFFS BID
     Route: 055

REACTIONS (3)
  - PNEUMONIA STREPTOCOCCAL [None]
  - ANAEMIA [None]
  - THROMBOSIS [None]
